FAERS Safety Report 5486916-6 (Version None)
Quarter: 2007Q4

REPORT INFORMATION
  Report Type: 
  Country: None (occurrence: None)
  Receive Date: 20071012
  Receipt Date: 20071012
  Transmission Date: 20080405
  Serious: Yes (Hospitalization, Other)
  Sender: FDA-Public Use
  Company Number: None

PATIENT
  Age: 23 Year
  Sex: Female
  Weight: 77.1115 kg

DRUGS (1)
  1. SUBUTEX [Suspect]
     Indication: DRUG DETOXIFICATION
     Dosage: 8MG TAB  1X/DAY  PO
     Route: 048
     Dates: start: 20071010, end: 20071011

REACTIONS (16)
  - ANOREXIA [None]
  - ASTHENIA [None]
  - ASTHENOPIA [None]
  - BACK PAIN [None]
  - BONE PAIN [None]
  - DIARRHOEA [None]
  - FATIGUE [None]
  - HYPOAESTHESIA [None]
  - HYPOAESTHESIA ORAL [None]
  - INFLUENZA LIKE ILLNESS [None]
  - MIGRAINE [None]
  - NAUSEA [None]
  - PAIN [None]
  - SALIVARY HYPERSECRETION [None]
  - TREMOR [None]
  - VOMITING [None]
